FAERS Safety Report 8179038-7 (Version None)
Quarter: 2012Q1

REPORT INFORMATION
  Report Type: 
  Country: None (occurrence: None)
  Receive Date: 20120302
  Receipt Date: 20120224
  Transmission Date: 20120608
  Serious: Yes (Hospitalization)
  Sender: FDA-Public Use
  Company Number: JP-ROCHE-1039030

PATIENT
  Sex: Male
  Weight: 60 kg

DRUGS (8)
  1. COPEGUS [Suspect]
     Indication: HEPATITIS C
     Route: 048
     Dates: start: 20110810, end: 20120125
  2. BLINDED BI 201335 (HCV PROTEASE INHIBITOR) [Suspect]
     Indication: HEPATITIS C
     Route: 048
     Dates: start: 20110810, end: 20120124
  3. POLAPREZINC [Suspect]
     Indication: PRODUCT USED FOR UNKNOWN INDICATION
     Dosage: FOR GASTRIC MUCOSA PROTECTION
     Dates: start: 20110831
  4. PEGINTERFERON ALFA-2A [Suspect]
     Dosage: FORM :SPI. THERAPY STOPPED ON AN UNSPECIFIED DATE
     Route: 058
     Dates: start: 20120208
  5. AMLODIPINE BESYLATE [Suspect]
     Indication: PRODUCT USED FOR UNKNOWN INDICATION
     Dosage: FOR HYPERPIESIA
     Dates: start: 20110801
  6. COPEGUS [Suspect]
     Route: 048
     Dates: start: 20120208
  7. PEGINTERFERON ALFA-2A [Suspect]
     Indication: HEPATITIS C
     Dosage: FORM :SPI
     Route: 058
     Dates: start: 20110810, end: 20120125
  8. LANSOPRAZOLE [Suspect]
     Indication: PRODUCT USED FOR UNKNOWN INDICATION
     Dosage: FOR GASTRIC MUCOSA PROTECTION
     Dates: start: 20110831

REACTIONS (1)
  - DIVERTICULITIS [None]
